FAERS Safety Report 5693095-9 (Version None)
Quarter: 2008Q2

REPORT INFORMATION
  Report Type: 
  Country: None (occurrence: None)
  Receive Date: 20080402
  Receipt Date: 20080402
  Transmission Date: 20081010
  Serious: Yes (Hospitalization)
  Sender: FDA-Public Use
  Company Number: None

PATIENT
  Sex: Male
  Weight: 64.5 kg

DRUGS (2)
  1. ESTRAMUSTINE [Suspect]
     Dosage: 11760 MG
  2. ARANESP [Suspect]
     Dosage: 200MCG EVERY 2 WEEKS

REACTIONS (5)
  - ARTHRALGIA [None]
  - NODULE [None]
  - OEDEMA PERIPHERAL [None]
  - THROMBOPHLEBITIS [None]
  - VEIN DISORDER [None]
